FAERS Safety Report 5049304-2 (Version None)
Quarter: 2006Q3

REPORT INFORMATION
  Report Type: 
  Country: None (occurrence: None)
  Receive Date: 20060706
  Receipt Date: 20060629
  Transmission Date: 20061208
  Serious: Yes (Hospitalization)
  Sender: FDA-Public Use
  Company Number: FRWYE927730JUN06

PATIENT
  Age: 57 Year
  Sex: Male

DRUGS (2)
  1. RAPAMUNE [Suspect]
     Indication: PROPHYLAXIS AGAINST TRANSPLANT REJECTION
     Dosage: 12 MG TOTAL DAILY AT THE TIME OF THE EVENT ORAL
     Route: 048
     Dates: start: 20021230
  2. MYCOPHENOLATE MOFETIL [Concomitant]

REACTIONS (1)
  - BONE PAIN [None]
